FAERS Safety Report 7295624-0 (Version None)
Quarter: 2011Q1

REPORT INFORMATION
  Report Type: 
  Country: None (occurrence: None)
  Receive Date: 20110216
  Receipt Date: 20101228
  Transmission Date: 20110831
  Serious: No
  Sender: FDA-Public Use
  Company Number: US-ABBOTT-10P-163-0694309-00

PATIENT
  Sex: Female
  Weight: 61.29 kg

DRUGS (1)
  1. SIMCOR [Suspect]
     Indication: DYSLIPIDAEMIA
     Dosage: 2 TABS AT NIGHT, 3 HOURS APART
     Dates: start: 20101221

REACTIONS (3)
  - PRURITUS [None]
  - FEELING HOT [None]
  - RASH [None]
